FAERS Safety Report 4764498-1 (Version None)
Quarter: 2005Q3

REPORT INFORMATION
  Report Type: 
  Country: None (occurrence: None)
  Receive Date: 20050909
  Receipt Date: 20050829
  Transmission Date: 20060218
  Serious: Yes (Hospitalization)
  Sender: FDA-Public Use
  Company Number: 2005AP04663

PATIENT
  Age: 77 Year
  Sex: Male

DRUGS (8)
  1. OMEPRAZOLE [Suspect]
     Indication: REFLUX OESOPHAGITIS
     Route: 048
     Dates: start: 20050704, end: 20050815
  2. SIGMART [Concomitant]
     Route: 048
  3. HERBESSER [Concomitant]
     Route: 048
  4. ASPIRIN [Concomitant]
     Route: 048
  5. CONAN [Concomitant]
     Route: 048
  6. BLOPRESS [Concomitant]
     Route: 048
  7. SELBEX [Concomitant]
     Route: 048
  8. ALLOID G [Concomitant]
     Route: 048

REACTIONS (2)
  - HEPATIC FUNCTION ABNORMAL [None]
  - RHABDOMYOLYSIS [None]
